FAERS Safety Report 12579583 (Version 2)
Quarter: 2016Q3

REPORT INFORMATION
  Report Type: Spontaneous
  Country: TW (occurrence: TW)
  Receive Date: 20160721
  Receipt Date: 20160927
  Transmission Date: 20161109
  Serious: Yes (Other)
  Sender: FDA-Public Use
  Company Number: TW-PFIZER INC-2016349246

PATIENT
  Age: 72 Year
  Sex: Male

DRUGS (3)
  1. CLEOCIN [Suspect]
     Active Substance: CLINDAMYCIN PHOSPHATE
     Indication: TOXIC SHOCK SYNDROME STREPTOCOCCAL
  2. AQ-PCN [Concomitant]
     Indication: TOXIC SHOCK SYNDROME STREPTOCOCCAL
  3. CIPROXIN [Concomitant]
     Active Substance: CIPROFLOXACIN
     Indication: TOXIC SHOCK SYNDROME STREPTOCOCCAL

REACTIONS (1)
  - Pulmonary oedema [Unknown]
